FAERS Safety Report 9178898 (Version 3)
Quarter: 2013Q2

REPORT INFORMATION
  Report Type: Report from Study
  Country: NL (occurrence: NL)
  Receive Date: 20130321
  Receipt Date: 20130415
  Transmission Date: 20140414
  Serious: Yes (Death, Other)
  Sender: FDA-Public Use
  Company Number: NL-BAXTER-2013BAX009907

PATIENT
  Age: 80 Year
  Sex: Female

DRUGS (6)
  1. KIOVIG 100 MG/ML SOLUTION POUR PERFUSION (10 G/100 ML) [Suspect]
     Indication: MULTIPLE SCLEROSIS
     Dosage: 100MG/ML
     Route: 042
     Dates: start: 20110104
  2. KIOVIG 100 MG/ML SOLUTION POUR PERFUSION (10 G/100 ML) [Suspect]
     Indication: OFF LABEL USE
     Dosage: ONE VIAL
     Route: 042
     Dates: start: 20130129
  3. KIOVIG 100 MG/ML SOLUTION POUR PERFUSION (10 G/100 ML) [Suspect]
     Dosage: ONE VIAL
     Route: 042
     Dates: start: 20130129
  4. KIOVIG 100 MG/ML SOLUTION POUR PERFUSION (10 G/100 ML) [Suspect]
     Dosage: ONE VIAL
     Route: 042
     Dates: start: 20130226
  5. KIOVIG 100 MG/ML SOLUTION POUR PERFUSION (10 G/100 ML) [Suspect]
     Dosage: ONE VIAL
     Route: 042
     Dates: start: 20130226
  6. KIOVIG 100 MG/ML SOLUTION POUR PERFUSION (10 G/100 ML) [Suspect]
     Route: 042
     Dates: start: 20110104

REACTIONS (2)
  - Sepsis [Fatal]
  - Cystitis noninfective [Unknown]
